FAERS Safety Report 13622074 (Version 1)
Quarter: 2017Q2

REPORT INFORMATION
  Report Type: Spontaneous
  Country: US (occurrence: US)
  Receive Date: 20170607
  Receipt Date: 20170607
  Transmission Date: 20170830
  Serious: No
  Sender: FDA-Public Use
  Company Number: US-ROCHE-1915788

PATIENT
  Sex: Male
  Weight: 93.07 kg

DRUGS (3)
  1. CELLCEPT [Suspect]
     Active Substance: MYCOPHENOLATE MOFETIL\MYCOPHENOLATE MOFETIL HYDROCHLORIDE
     Indication: MYASTHENIA GRAVIS
     Dosage: 3 TABLETS TWICE A DAY
     Route: 048
     Dates: start: 200901
  2. PREDNISONE. [Suspect]
     Active Substance: PREDNISONE
     Route: 048
     Dates: end: 2011
  3. PREDNISONE. [Suspect]
     Active Substance: PREDNISONE
     Indication: MYASTHENIA GRAVIS
     Route: 048

REACTIONS (4)
  - Insomnia [Recovered/Resolved]
  - Weight increased [Recovered/Resolved]
  - Abdominal discomfort [Recovered/Resolved]
  - Blood pressure increased [Recovered/Resolved]
